FAERS Safety Report 12172980 (Version 2)
Quarter: 2016Q2

REPORT INFORMATION
  Report Type: Spontaneous
  Country: US (occurrence: US)
  Receive Date: 20160311
  Receipt Date: 20160413
  Transmission Date: 20160815
  Serious: Yes (Other)
  Sender: FDA-Public Use
  Company Number: US-JNJFOC-20160304713

PATIENT
  Sex: Male

DRUGS (3)
  1. RISPERDAL [Suspect]
     Active Substance: RISPERIDONE
     Indication: SCHIZOPHRENIA
     Route: 048
  2. RISPERDAL [Suspect]
     Active Substance: RISPERIDONE
     Indication: SCHIZOPHRENIA
     Route: 048
     Dates: start: 2009, end: 2011
  3. INVEGA [Suspect]
     Active Substance: PALIPERIDONE
     Indication: SCHIZOPHRENIA
     Route: 048
     Dates: start: 2011

REACTIONS (10)
  - Cold sweat [Recovered/Resolved]
  - Furuncle [Recovered/Resolved]
  - Muscle spasms [Recovered/Resolved]
  - Adverse event [Recovered/Resolved]
  - Treatment noncompliance [Unknown]
  - Arteriospasm coronary [Recovered/Resolved]
  - Tremor [Unknown]
  - Night sweats [Unknown]
  - Imprisonment [Unknown]
  - Weight increased [Unknown]

NARRATIVE: CASE EVENT DATE: 2010
